FAERS Safety Report 13031233 (Version 3)
Quarter: 2016Q4

REPORT INFORMATION
  Report Type: Report from Study
  Country: CA (occurrence: CA)
  Receive Date: 20161215
  Receipt Date: 20161221
  Transmission Date: 20170207
  Serious: Yes (Death, Hospitalization)
  Sender: FDA-Public Use
  Company Number: CA-B.I. PHARMACEUTICALS,INC./RIDGEFIELD-2016-BI-082183

PATIENT
  Age: 89 Year
  Sex: Male

DRUGS (4)
  1. OFEV [Suspect]
     Active Substance: NINTEDANIB
     Route: 048
     Dates: end: 20161216
  2. LEUKERAN [Concomitant]
     Active Substance: CHLORAMBUCIL
     Indication: PRODUCT USED FOR UNKNOWN INDICATION
     Route: 065
  3. OFEV [Suspect]
     Active Substance: NINTEDANIB
     Indication: IDIOPATHIC PULMONARY FIBROSIS
     Route: 048
     Dates: start: 20161126, end: 20161206
  4. OXYGEN. [Concomitant]
     Active Substance: OXYGEN
     Indication: PRODUCT USED FOR UNKNOWN INDICATION
     Route: 065

REACTIONS (13)
  - White blood cell count decreased [Not Recovered/Not Resolved]
  - Dyspnoea [Not Recovered/Not Resolved]
  - Lower respiratory tract infection [Not Recovered/Not Resolved]
  - Diarrhoea [Recovered/Resolved]
  - Oxygen saturation [Recovered/Resolved]
  - Somnolence [Not Recovered/Not Resolved]
  - Diarrhoea [Recovered/Resolved]
  - Death [Fatal]
  - Cough [Not Recovered/Not Resolved]
  - White blood cell count [Not Recovered/Not Resolved]
  - Pneumonia [Not Recovered/Not Resolved]
  - Secretion discharge [Not Recovered/Not Resolved]
  - Leukaemia [Not Recovered/Not Resolved]

NARRATIVE: CASE EVENT DATE: 20161126
